FAERS Safety Report 18853638 (Version 1)
Quarter: 2021Q1

REPORT INFORMATION
  Report Type: Report from Study
  Country: CH (occurrence: CH)
  Receive Date: 20210205
  Receipt Date: 20210205
  Transmission Date: 20210420
  Serious: Yes (Death, Hospitalization)
  Sender: FDA-Public Use
  Company Number: CH-ROCHE-2695565

PATIENT
  Age: 76 Year
  Sex: Female
  Weight: 56.8 kg

DRUGS (14)
  1. ELTROXIN [Concomitant]
     Active Substance: LEVOTHYROXINE
     Dates: start: 20200619, end: 20210109
  2. EXFORGE [Concomitant]
     Active Substance: AMLODIPINE BESYLATE\VALSARTAN
     Dosage: 5 MG/80 MG
     Dates: start: 20201203, end: 20210108
  3. AUGMENTIN [Concomitant]
     Active Substance: AMOXICILLIN\CLAVULANATE POTASSIUM
     Dates: start: 20201010, end: 20201011
  4. ATEZOLIZUMAB. [Suspect]
     Active Substance: ATEZOLIZUMAB
     Indication: CHRONIC LYMPHOCYTIC LEUKAEMIA
     Dosage: DATE OF LAST DOSE OF ATEZOLIZUMAB PRIOR TO AE: 06/OCT/2020
     Route: 041
     Dates: start: 20200625
  5. ZYLORIC [Concomitant]
     Active Substance: ALLOPURINOL
     Dates: end: 20201011
  6. ESOMEPRAZOLE. [Concomitant]
     Active Substance: ESOMEPRAZOLE MAGNESIUM
     Route: 065
     Dates: start: 20200623, end: 20210109
  7. VALTREX [Concomitant]
     Active Substance: VALACYCLOVIR HYDROCHLORIDE
  8. VALTREX [Concomitant]
     Active Substance: VALACYCLOVIR HYDROCHLORIDE
     Dates: start: 20201204, end: 20210109
  9. KALIUM [Concomitant]
     Active Substance: POTASSIUM CHLORIDE
     Dates: start: 20201215, end: 20201215
  10. OBINUTUZUMAB. [Suspect]
     Active Substance: OBINUTUZUMAB
     Indication: CHRONIC LYMPHOCYTIC LEUKAEMIA
     Dosage: DATE OF LAST DOSE PRIOR TO ADVERSE EVENT: 06/OCT/2020, 15/NOV/2020,18/NOV/2020
     Route: 042
     Dates: start: 20200624
  11. ZYLORIC [Concomitant]
     Active Substance: ALLOPURINOL
     Dates: start: 20201121, end: 20210109
  12. KCL HAUSMANN RETARD [Concomitant]
     Dates: start: 20201215, end: 20201218
  13. VENETOCLAX. [Suspect]
     Active Substance: VENETOCLAX
     Indication: CHRONIC LYMPHOCYTIC LEUKAEMIA
     Dosage: MOST RECENT DOSE OF VENETOCLAX PRIOR TO AE: 10/OCT/2020. 20/NOV/2020
     Route: 048
     Dates: start: 20200804
  14. MOVIPREP [Concomitant]
     Active Substance: ASCORBIC ACID\POLYETHYLENE GLYCOL 3350\POTASSIUM CHLORIDE\SODIUM ASCORBATE\SODIUM CHLORIDE\SODIUM SULFATE
     Dates: start: 20201214, end: 20201215

REACTIONS (6)
  - Pyrexia [Not Recovered/Not Resolved]
  - Asthenia [Recovered/Resolved]
  - Pyrexia [Fatal]
  - Encephalitis autoimmune [Recovered/Resolved]
  - Respiratory tract infection [Fatal]
  - Chills [Fatal]

NARRATIVE: CASE EVENT DATE: 20201011
